FAERS Safety Report 4953944-6 (Version None)
Quarter: 2006Q1

REPORT INFORMATION
  Report Type: 
  Country: None (occurrence: None)
  Receive Date: 20060327
  Receipt Date: 20060317
  Transmission Date: 20060701
  Serious: Yes (Other)
  Sender: FDA-Public Use
  Company Number: CA-JNJFOC-20060305436

PATIENT
  Sex: Female

DRUGS (16)
  1. CAELYX [Suspect]
     Route: 042
  2. CAELYX [Suspect]
     Route: 042
  3. CAELYX [Suspect]
     Route: 042
  4. CAELYX [Suspect]
     Route: 042
  5. CAELYX [Suspect]
     Route: 042
  6. CAELYX [Suspect]
     Route: 042
  7. CAELYX [Suspect]
     Route: 042
  8. CAELYX [Suspect]
     Indication: OVARIAN CANCER
     Route: 042
  9. CARBOPLATIN [Suspect]
     Route: 042
  10. CARBOPLATIN [Suspect]
     Route: 042
  11. CARBOPLATIN [Suspect]
     Route: 042
  12. CARBOPLATIN [Suspect]
     Route: 042
  13. CARBOPLATIN [Suspect]
     Route: 042
  14. CARBOPLATIN [Suspect]
     Route: 042
  15. CARBOPLATIN [Suspect]
     Route: 042
  16. CARBOPLATIN [Suspect]
     Indication: OVARIAN CANCER
     Route: 042

REACTIONS (1)
  - HYPERSENSITIVITY [None]
